FAERS Safety Report 7305553-1 (Version None)
Quarter: 2011Q1

REPORT INFORMATION
  Report Type: 
  Country: None (occurrence: None)
  Receive Date: 20110222
  Receipt Date: 20110214
  Transmission Date: 20110831
  Serious: Yes (Hospitalization, Other)
  Sender: FDA-Public Use
  Company Number: US-AMGEN-USASP2010004982

PATIENT
  Age: 43 Year
  Sex: Female

DRUGS (6)
  1. ENBREL [Suspect]
     Indication: PSORIASIS
     Dosage: 25 MG, 2 TIMES/WK
     Route: 058
     Dates: start: 20030101, end: 20101101
  2. CELLCEPT [Concomitant]
     Dosage: UNK
     Dates: end: 20100101
  3. NORVASC [Concomitant]
     Dosage: UNK
     Dates: end: 20100101
  4. PRENATAL VITAMINS                  /01549301/ [Concomitant]
  5. METHYLDOPA [Concomitant]
     Dosage: 250 MG, TID
     Route: 048
     Dates: start: 20100101
  6. ENBREL [Suspect]
     Dosage: UNK
     Dates: start: 20100101

REACTIONS (5)
  - SUPPRESSED LACTATION [None]
  - FAILED INDUCTION OF LABOUR [None]
  - INCISION SITE HAEMATOMA [None]
  - PSORIASIS [None]
  - GESTATIONAL DIABETES [None]
